FAERS Safety Report 4278468-3 (Version None)
Quarter: 2004Q1

REPORT INFORMATION
  Report Type: 
  Country: None (occurrence: None)
  Receive Date: 20040123
  Receipt Date: 20040113
  Transmission Date: 20041129
  Serious: Yes (Hospitalization, Other)
  Sender: FDA-Public Use
  Company Number: WAES 0401ESP00009

PATIENT
  Age: 47 Year
  Sex: Male

DRUGS (3)
  1. INDOCIN [Suspect]
     Route: 048
     Dates: start: 19950101
  2. OMEPRAZOLE [Concomitant]
  3. PAROXETINE [Concomitant]

REACTIONS (12)
  - CACHEXIA [None]
  - DEHYDRATION [None]
  - DIARRHOEA [None]
  - GENERAL PHYSICAL HEALTH DETERIORATION [None]
  - HAEMATOCRIT DECREASED [None]
  - HAEMOGLOBIN DECREASED [None]
  - ILEAL PERFORATION [None]
  - PERITONITIS [None]
  - PNEUMONIA [None]
  - PNEUMOPERITONEUM [None]
  - POSTOPERATIVE INFECTION [None]
  - SEPSIS [None]
